FAERS Safety Report 10355699 (Version 3)
Quarter: 2014Q3

REPORT INFORMATION
  Report Type: Spontaneous
  Country: DE (occurrence: DE)
  Receive Date: 20140731
  Receipt Date: 20140919
  Transmission Date: 20150326
  Serious: Yes (Hospitalization, Other)
  Sender: FDA-Public Use
  Company Number: DE-GILEAD-2014-0110439

PATIENT
  Age: 54 Year
  Sex: Male
  Weight: 84 kg

DRUGS (13)
  1. VFEND [Concomitant]
     Active Substance: VORICONAZOLE
  2. EBRANTIL                           /00631801/ [Concomitant]
     Active Substance: URAPIDIL
  3. RIBAVIRIN. [Concomitant]
     Active Substance: RIBAVIRIN
     Indication: HEPATITIS C
     Dosage: 800 MG, QD
     Route: 065
     Dates: end: 20140711
  4. MODIGRAF [Concomitant]
     Active Substance: TACROLIMUS
  5. DOXAZOSIN [Concomitant]
     Active Substance: DOXAZOSIN\DOXAZOSIN MESYLATE
  6. UDC [Concomitant]
  7. RIBAVIRIN. [Concomitant]
     Active Substance: RIBAVIRIN
     Dosage: 400 UNK, UNK
  8. BISOPROLOL [Concomitant]
     Active Substance: BISOPROLOL
  9. SOVALDI [Suspect]
     Active Substance: SOFOSBUVIR
     Indication: HEPATITIS C
     Dosage: 400 MG, QD
     Route: 065
     Dates: start: 20140324, end: 20140711
  10. CELLCEPT [Concomitant]
     Active Substance: MYCOPHENOLATE MOFETIL\MYCOPHENOLATE MOFETIL HYDROCHLORIDE
  11. PANTOZOL [Concomitant]
     Active Substance: PANTOPRAZOLE SODIUM
  12. FUROSEMID                          /00032601/ [Concomitant]
     Active Substance: FUROSEMIDE
  13. NEPRESOL                           /00017902/ [Concomitant]

REACTIONS (11)
  - Leukopenia [Unknown]
  - Pneumonitis [Recovering/Resolving]
  - Dyspnoea at rest [Not Recovered/Not Resolved]
  - Drug ineffective [Unknown]
  - Pneumonia [Recovering/Resolving]
  - C-reactive protein increased [Unknown]
  - Computerised tomogram abnormal [Unknown]
  - Pleural effusion [Unknown]
  - Viral load increased [Unknown]
  - Unevaluable event [Unknown]
  - X-ray abnormal [Unknown]

NARRATIVE: CASE EVENT DATE: 201406
